FAERS Safety Report 23781483 (Version 1)
Quarter: 2024Q2

REPORT INFORMATION
  Report Type: Spontaneous
  Country: US (occurrence: US)
  Receive Date: 20240425
  Receipt Date: 20240425
  Transmission Date: 20240715
  Serious: Yes (Other)
  Sender: FDA-Public Use
  Company Number: US-SA-SAC20240420000150

PATIENT
  Age: 52 Year
  Sex: Female

DRUGS (1)
  1. DUPIXENT [Suspect]
     Active Substance: DUPILUMAB
     Dosage: 300 MG, QOW
     Route: 058

REACTIONS (11)
  - Cataract [Unknown]
  - Dry skin [Unknown]
  - Skin fissures [Unknown]
  - Skin haemorrhage [Unknown]
  - Skin weeping [Unknown]
  - Sleep disorder due to a general medical condition [Unknown]
  - Pruritus [Unknown]
  - Skin exfoliation [Unknown]
  - Dry eye [Unknown]
  - Injection site erythema [Unknown]
  - Injection site swelling [Unknown]

NARRATIVE: CASE EVENT DATE: 20240101
